FAERS Safety Report 12736075 (Version 1)
Quarter: 2016Q3

REPORT INFORMATION
  Report Type: Report from Study
  Country: CN (occurrence: CN)
  Receive Date: 20160913
  Receipt Date: 20160913
  Transmission Date: 20161109
  Serious: Yes (Death)
  Sender: FDA-Public Use
  Company Number: CN-ROCHE-1753988

PATIENT
  Age: 59 Year
  Sex: Female
  Weight: 55 kg

DRUGS (1)
  1. AVASTIN [Suspect]
     Active Substance: BEVACIZUMAB
     Indication: RECTAL ADENOCARCINOMA
     Route: 041
     Dates: start: 20150615

REACTIONS (4)
  - Body temperature increased [Unknown]
  - Rectal adenocarcinoma [Fatal]
  - Nasopharyngitis [Unknown]
  - Drug ineffective [Fatal]

NARRATIVE: CASE EVENT DATE: 20160412
